FAERS Safety Report 6688475-9 (Version None)
Quarter: 2010Q2

REPORT INFORMATION
  Report Type: 
  Country: None (occurrence: None)
  Receive Date: 20100413
  Receipt Date: 20100408
  Transmission Date: 20101027
  Serious: Yes (Hospitalization)
  Sender: FDA-Public Use
  Company Number: 2009SP001678

PATIENT
  Age: 63 Year
  Sex: Female
  Weight: 46 kg

DRUGS (11)
  1. TEMODAL [Suspect]
     Indication: ANAPLASTIC ASTROCYTOMA
     Dosage: 75 MG/M2;QD;PO, 150 MG/M2;QD;PO
     Route: 048
     Dates: start: 20070111, end: 20070224
  2. TEMODAL [Suspect]
     Indication: ANAPLASTIC ASTROCYTOMA
     Dosage: 75 MG/M2;QD;PO, 150 MG/M2;QD;PO
     Route: 048
     Dates: start: 20070325, end: 20070329
  3. TEMODAL [Suspect]
     Indication: ANAPLASTIC ASTROCYTOMA
     Dosage: 75 MG/M2;QD;PO, 150 MG/M2;QD;PO
     Route: 048
     Dates: start: 20070422, end: 20070426
  4. TEMODAL [Suspect]
     Indication: ANAPLASTIC ASTROCYTOMA
     Dosage: 75 MG/M2;QD;PO, 150 MG/M2;QD;PO
     Route: 048
     Dates: start: 20070523, end: 20070525
  5. TEMODAL [Suspect]
     Indication: ANAPLASTIC ASTROCYTOMA
     Dosage: 75 MG/M2;QD;PO, 150 MG/M2;QD;PO
     Route: 048
     Dates: start: 20070703, end: 20070707
  6. TEMODAL [Suspect]
     Indication: ANAPLASTIC ASTROCYTOMA
     Dosage: 75 MG/M2;QD;PO, 150 MG/M2;QD;PO
     Route: 048
     Dates: start: 20070801, end: 20070805
  7. TEMODAL [Suspect]
     Indication: ANAPLASTIC ASTROCYTOMA
     Dosage: 75 MG/M2;QD;PO, 150 MG/M2;QD;PO
     Route: 048
     Dates: start: 20070906, end: 20070910
  8. COTRIM [Concomitant]
  9. PHENOBARBITAL TAB [Concomitant]
  10. TEGRETOL [Concomitant]
  11. FAMOTIDINE [Concomitant]

REACTIONS (4)
  - NAUSEA [None]
  - NEUTROPHIL COUNT DECREASED [None]
  - PARALYSIS [None]
  - RADIATION NECROSIS [None]
